FAERS Safety Report 7994474-7 (Version None)
Quarter: 2011Q4

REPORT INFORMATION
  Report Type: 
  Country: None (occurrence: None)
  Receive Date: 20111220
  Receipt Date: 20111212
  Transmission Date: 20120403
  Serious: Yes (Other)
  Sender: FDA-Public Use
  Company Number: US-AMGEN-USASP2011066096

PATIENT
  Age: 63 Year
  Sex: Male

DRUGS (3)
  1. ENBREL [Suspect]
     Indication: RHEUMATOID ARTHRITIS
     Dosage: 50 MG, QWK
     Dates: start: 20060415, end: 20111006
  2. PREDNISONE TAB [Concomitant]
     Dosage: UNK
  3. ENBREL [Suspect]
     Indication: DIABETES MELLITUS

REACTIONS (3)
  - SINUSITIS [None]
  - RHEUMATOID ARTHRITIS [None]
  - BLOOD GLUCOSE INCREASED [None]
